FAERS Safety Report 25370393 (Version 1)
Quarter: 2025Q2

REPORT INFORMATION
  Report Type: Spontaneous
  Country: US (occurrence: US)
  Receive Date: 20250528
  Receipt Date: 20250528
  Transmission Date: 20250717
  Serious: No
  Sender: SANOFI AVENTIS
  Company Number: US-SA-2025SA150986

PATIENT
  Sex: Male

DRUGS (6)
  1. DUPIXENT [Suspect]
     Active Substance: DUPILUMAB
     Indication: Eosinophilic oesophagitis
     Dosage: 300 MG, QW
     Route: 058
     Dates: start: 20240808
  2. BOOSTRIX [Concomitant]
     Active Substance: TETANUS TOXOID, REDUCED DIPHTHERIA TOXOID AND ACELLULAR PERTUSSIS VACCINE, ADSORBED ANTIGENS
  3. ACETAMINOPHEN\HYDROCODONE [Concomitant]
     Active Substance: ACETAMINOPHEN\HYDROCODONE
  4. ONDANSETRON [Concomitant]
     Active Substance: ONDANSETRON
  5. TRAZODONE [Concomitant]
     Active Substance: TRAZODONE HYDROCHLORIDE
  6. DULOXETINE [Concomitant]
     Active Substance: DULOXETINE

REACTIONS (7)
  - Memory impairment [Unknown]
  - Pain [Unknown]
  - Eye irritation [Unknown]
  - Injection site reaction [Unknown]
  - Drug ineffective [Unknown]
  - Impaired quality of life [Unknown]
  - Product dose omission in error [Unknown]
